FAERS Safety Report 7979222-9 (Version None)
Quarter: 2011Q4

REPORT INFORMATION
  Report Type: 
  Country: None (occurrence: None)
  Receive Date: 20111214
  Receipt Date: 20111207
  Transmission Date: 20120403
  Serious: Yes (Other)
  Sender: FDA-Public Use
  Company Number: BR-JNJFOC-20111200258

PATIENT
  Sex: Female
  Weight: 68 kg

DRUGS (5)
  1. CARBAMAZEPINA [Concomitant]
     Indication: BIPOLAR DISORDER
     Route: 048
  2. NICORETTE [Suspect]
     Route: 062
  3. NICORETTE [Suspect]
     Indication: DEPENDENCE
     Dosage: FOR THREE YEARS
     Route: 048
     Dates: start: 20090101
  4. NICORETTE [Suspect]
     Indication: SMOKING CESSATION THERAPY
     Dosage: DIVIDED THE PATCH INTO FOUR PIECES
     Route: 062
     Dates: start: 20090101, end: 20090101
  5. CARBOLITIUM [Concomitant]
     Indication: BIPOLAR DISORDER
     Route: 048

REACTIONS (3)
  - DEPENDENCE [None]
  - APPLICATION SITE IRRITATION [None]
  - INTENTIONAL DRUG MISUSE [None]
